FAERS Safety Report 16345874 (Version 2)
Quarter: 2020Q2

REPORT INFORMATION
  Report Type: Spontaneous
  Country: US (occurrence: US)
  Receive Date: 20190523
  Receipt Date: 20200622
  Transmission Date: 20200713
  Serious: No
  Sender: FDA-Public Use
  Company Number: US-AUROBINDO-AUR-APL-2019-025415

PATIENT
  Sex: Male

DRUGS (1)
  1. FENOFIBRATE TABLET USP 145 MG [Suspect]
     Active Substance: FENOFIBRATE
     Indication: PRODUCT USED FOR UNKNOWN INDICATION
     Dosage: 1 DOSAGE FORM, DAILY, AT NIGHT
     Route: 048

REACTIONS (2)
  - Product residue present [Unknown]
  - Product solubility abnormal [Unknown]
